FAERS Safety Report 9553192 (Version 2)
Quarter: 2015Q2

REPORT INFORMATION
  Report Type: Report from Study
  Country: GB (occurrence: GB)
  Receive Date: 20130925
  Receipt Date: 20150406
  Transmission Date: 20150821
  Serious: Yes (Death)
  Sender: FDA-Public Use
  Company Number: GB-ROCHE-1278991

PATIENT
  Sex: Male

DRUGS (1)
  1. RITUXIMAB [Suspect]
     Active Substance: RITUXIMAB
     Indication: RHEUMATOID ARTHRITIS
     Route: 065
     Dates: start: 20070912

REACTIONS (4)
  - Parkinson^s disease [Fatal]
  - Chronic obstructive pulmonary disease [Fatal]
  - Bronchopneumonia [Fatal]
  - Myocardial ischaemia [Fatal]
